FAERS Safety Report 14284168 (Version 7)
Quarter: 2018Q1

REPORT INFORMATION
  Report Type: Spontaneous
  Country: JP (occurrence: JP)
  Receive Date: 20171214
  Receipt Date: 20180214
  Transmission Date: 20180509
  Serious: Yes (Death, Hospitalization, Other)
  Sender: FDA-Public Use
  Company Number: JP-009507513-1712JPN001220J

PATIENT
  Age: 68 Year
  Sex: Female
  Weight: 48 kg

DRUGS (7)
  1. ZOLINZA [Suspect]
     Active Substance: VORINOSTAT
     Dosage: 300 MG, QOD
     Route: 048
     Dates: start: 20171123, end: 20171209
  2. ZOLINZA [Suspect]
     Active Substance: VORINOSTAT
     Dosage: 200 MG, QOD
     Route: 048
     Dates: start: 20171211, end: 20171227
  3. ZOLINZA [Suspect]
     Active Substance: VORINOSTAT
     Dosage: 200 MG, QOD
     Route: 048
     Dates: start: 20171122, end: 20171210
  4. ZOLINZA [Suspect]
     Active Substance: VORINOSTAT
     Dosage: 300 MG, QOD
     Route: 048
     Dates: start: 20171212, end: 20171228
  5. ZOLINZA [Suspect]
     Active Substance: VORINOSTAT
     Indication: MYCOSIS FUNGOIDES
     Dosage: 200 MG, QD
     Route: 048
     Dates: start: 20171108, end: 20171121
  6. ZOLINZA [Suspect]
     Active Substance: VORINOSTAT
     Dosage: 300 MG, QD
     Route: 048
     Dates: start: 20171229, end: 20180111
  7. CANDESARTAN. [Concomitant]
     Active Substance: CANDESARTAN
     Indication: HYPERTENSION
     Dosage: 2 MG, QD
     Route: 048

REACTIONS (4)
  - Atrial fibrillation [Recovering/Resolving]
  - Electrocardiogram QT prolonged [Recovering/Resolving]
  - Hypokalaemia [Recovering/Resolving]
  - Pneumonia influenzal [Fatal]

NARRATIVE: CASE EVENT DATE: 20171113
